FAERS Safety Report 25215418 (Version 3)
Quarter: 2025Q3

REPORT INFORMATION
  Report Type: Report from Study
  Country: AR (occurrence: AR)
  Receive Date: 20250418
  Receipt Date: 20250716
  Transmission Date: 20251021
  Serious: Yes (Other)
  Sender: AMGEN
  Company Number: AR-AMGEN-ARGSL2024209820

PATIENT
  Age: 74 Year
  Sex: Male

DRUGS (1)
  1. VECTIBIX [Suspect]
     Active Substance: PANITUMUMAB
     Indication: Colorectal cancer
     Route: 065
     Dates: start: 20241007

REACTIONS (11)
  - Urinary tract infection [Unknown]
  - Pyrexia [Unknown]
  - Erysipelas [Unknown]
  - Skin disorder [Unknown]
  - Skin reaction [Unknown]
  - Blister [Unknown]
  - Pain in extremity [Unknown]
  - Rash [Unknown]
  - Acne [Unknown]
  - Pruritus [Unknown]
  - Cellulitis [Unknown]

NARRATIVE: CASE EVENT DATE: 20240101
